FAERS Safety Report 25725890 (Version 1)
Quarter: 2025Q3

REPORT INFORMATION
  Report Type: Spontaneous
  Country: EU (occurrence: EU)
  Receive Date: 20250826
  Receipt Date: 20250826
  Transmission Date: 20251021
  Serious: Yes (Hospitalization)
  Sender: RANBAXY
  Company Number: EU-AFSSAPS-PA2025000467

PATIENT
  Age: 26 Year
  Sex: Male

DRUGS (5)
  1. OLANZAPINE [Suspect]
     Active Substance: OLANZAPINE
     Indication: Mania
     Dosage: 20 MILLIGRAM, DAILY
     Route: 048
     Dates: start: 20250417
  2. CYAMEMAZINE [Suspect]
     Active Substance: CYAMEMAZINE
     Indication: Mania
     Dosage: 200 MILLIGRAM, DAILY
     Route: 048
     Dates: start: 202503
  3. ABILIFY [Suspect]
     Active Substance: ARIPIPRAZOLE
     Indication: Mania
     Dosage: 30 MILLIGRAM, DAILY
     Route: 048
     Dates: start: 202503, end: 20250417
  4. MELATONIN [Suspect]
     Active Substance: MELATONIN
     Indication: Sleep disorder
     Dosage: 4 MILLIGRAM, DAILY
     Route: 048
     Dates: start: 2025
  5. METFORMIN [Suspect]
     Active Substance: METFORMIN HYDROCHLORIDE
     Indication: Weight control
     Dosage: 1000 MILLIGRAM, DAILY
     Route: 048
     Dates: start: 20250418

REACTIONS (1)
  - Hepatocellular injury [Recovering/Resolving]

NARRATIVE: CASE EVENT DATE: 20250428
